FAERS Safety Report 10871809 (Version 1)
Quarter: 2015Q1

REPORT INFORMATION
  Report Type: Spontaneous
  Country: US (occurrence: None)
  Receive Date: 20150223
  Receipt Date: 20150223
  Transmission Date: 20150721
  Serious: No
  Sender: FDA-Public Use
  Company Number: None

PATIENT
  Age: 41 Year
  Sex: Female
  Weight: 54.43 kg

DRUGS (4)
  1. SYEDA [Suspect]
     Active Substance: DROSPIRENONE\ETHINYL ESTRADIOL
     Indication: CONTRACEPTION
     Route: 048
  2. SYEDA [Suspect]
     Active Substance: DROSPIRENONE\ETHINYL ESTRADIOL
     Indication: PREMENSTRUAL SYNDROME
     Route: 048
  3. LAMOTRIGINE. [Concomitant]
     Active Substance: LAMOTRIGINE
  4. YAZ [Concomitant]
     Active Substance: DROSPIRENONE\ETHINYL ESTRADIOL

REACTIONS (12)
  - Mood swings [None]
  - Crying [None]
  - Irritability [None]
  - Product substitution issue [None]
  - Premenstrual syndrome [None]
  - Anger [None]
  - Depression [None]
  - Breast tenderness [None]
  - Weight increased [None]
  - Condition aggravated [None]
  - Abdominal distension [None]
  - Product quality issue [None]

NARRATIVE: CASE EVENT DATE: 20110801
